FAERS Safety Report 12862328 (Version 1)
Quarter: 2016Q4

REPORT INFORMATION
  Report Type: Spontaneous
  Country: US (occurrence: US)
  Receive Date: 20161018
  Receipt Date: 20161018
  Transmission Date: 20170207
  Serious: No
  Sender: FDA-Public Use
  Company Number: None

PATIENT
  Age: 44 Year
  Sex: Female
  Weight: 65.7 kg

DRUGS (1)
  1. CHORIONIC GONADOTROPIN [Suspect]
     Active Substance: CHORIOGONADOTROPIN ALFA
     Indication: WEIGHT DECREASED
     Dosage: ?          QUANTITY:2500 CC;?
     Route: 058
     Dates: start: 20160919, end: 20161011

REACTIONS (2)
  - Product contamination microbial [None]
  - Product quality issue [None]

NARRATIVE: CASE EVENT DATE: 20160920
